FAERS Safety Report 20613511 (Version 2)
Quarter: 2022Q1

REPORT INFORMATION
  Report Type: Spontaneous
  Country: US (occurrence: US)
  Receive Date: 20220319
  Receipt Date: 20220321
  Transmission Date: 20220423
  Serious: Yes (Death, Hospitalization, Other)
  Sender: FDA-Public Use
  Company Number: US-UNITED THERAPEUTICS-UNT-2022-004471

PATIENT
  Age: 68 Year
  Sex: Female

DRUGS (4)
  1. REMODULIN [Suspect]
     Active Substance: TREPROSTINIL
     Indication: Pulmonary arterial hypertension
     Dosage: UNK, CONTINUING
     Route: 041
     Dates: start: 20210803
  2. REMODULIN [Suspect]
     Active Substance: TREPROSTINIL
     Dosage: 0.1269 ?G/KG, CONTINUING
     Route: 041
  3. REMODULIN [Suspect]
     Active Substance: TREPROSTINIL
     Dosage: 0.113 ?G/KG, CONTINUING
     Route: 041
  4. REMODULIN [Suspect]
     Active Substance: TREPROSTINIL
     Dosage: 0.1236 ?G/KG, CONTINUING (PUMP RATE 36 ML/24 HR)
     Route: 041
     Dates: start: 20220309, end: 20220317

REACTIONS (8)
  - Pulmonary arterial hypertension [Fatal]
  - Respiratory distress [Unknown]
  - Scleroderma [Unknown]
  - Hypoxia [Unknown]
  - Oedema [Unknown]
  - Anaemia [Unknown]
  - Renal disorder [Unknown]
  - Weight decreased [Unknown]

NARRATIVE: CASE EVENT DATE: 20220225
